FAERS Safety Report 8458114-5 (Version None)
Quarter: 2012Q2

REPORT INFORMATION
  Report Type: 
  Country: None (occurrence: None)
  Receive Date: 20120622
  Receipt Date: 20120614
  Transmission Date: 20120825
  Serious: Yes (Other)
  Sender: FDA-Public Use
  Company Number: JP-BAYER-2012-003464

PATIENT
  Age: 70 Year
  Sex: Male

DRUGS (1)
  1. NEXAVAR [Suspect]
     Indication: HEPATIC NEOPLASM MALIGNANT
     Dosage: DAILY DOSE 600 MG
     Route: 048
     Dates: start: 20111226, end: 20120112

REACTIONS (6)
  - DECREASED APPETITE [None]
  - GASTRIC ULCER [None]
  - HAEMOGLOBIN DECREASED [None]
  - GASTRIC ULCER HAEMORRHAGE [None]
  - FAECES DISCOLOURED [None]
  - DUODENAL ULCER [None]
